FAERS Safety Report 4964463-5 (Version None)
Quarter: 2006Q2

REPORT INFORMATION
  Report Type: 
  Country: None (occurrence: None)
  Receive Date: 20060406
  Receipt Date: 20060327
  Transmission Date: 20061013
  Serious: Yes (Life-Threatening, Other)
  Sender: FDA-Public Use
  Company Number: PT-AVENTIS-200613048GDDC

PATIENT
  Age: 60 Year
  Sex: Female
  Weight: 62.5 kg

DRUGS (7)
  1. KETEK [Suspect]
     Indication: LUNG DISORDER
     Route: 048
     Dates: start: 20060213, end: 20060218
  2. ACETYLCYSTEINE [Concomitant]
     Indication: PRODUCTIVE COUGH
     Dosage: DOSE: UNK
     Route: 048
     Dates: start: 20060213, end: 20060218
  3. LYSINE ACETYLSALICYLATE [Concomitant]
     Indication: NASOPHARYNGITIS
     Dosage: DOSE: UNK
     Dates: start: 20060208, end: 20060211
  4. GLICLAZIDE [Concomitant]
     Indication: DIABETES MELLITUS
     Dosage: DOSE: UNK
     Route: 048
  5. DESLORATADINE [Concomitant]
     Indication: SNEEZING
     Dosage: DOSE: UNK
     Dates: start: 20060213, end: 20060217
  6. BROMHEXINE CHLORIDE [Concomitant]
     Indication: PRODUCTIVE COUGH
     Dosage: DOSE: UNK
     Route: 048
     Dates: start: 20060208, end: 20060211
  7. NIMESULIDE [Concomitant]
     Indication: PAIN
     Dosage: DOSE: UNK
     Route: 048
     Dates: start: 20060213, end: 20060218

REACTIONS (7)
  - AGEUSIA [None]
  - ANOREXIA [None]
  - CHEILITIS [None]
  - DYSGEUSIA [None]
  - DYSPHAGIA [None]
  - SWELLING FACE [None]
  - TACHYCARDIA [None]
